FAERS Safety Report 9259472 (Version 1)
Quarter: 2013Q2

REPORT INFORMATION
  Report Type: Report from Study
  Country: TW (occurrence: TW)
  Receive Date: 20130428
  Receipt Date: 20130428
  Transmission Date: 20140414
  Serious: No
  Sender: FDA-Public Use
  Company Number: PHHY2013TW041232

PATIENT
  Age: 33 Year
  Sex: Male

DRUGS (7)
  1. AMN107 [Suspect]
     Dates: start: 20120127, end: 20130317
  2. ARTIFICIAL TEARS                   /00880201/ [Concomitant]
     Indication: DRY EYE
     Dates: start: 20120213, end: 20120313
  3. ARTELAC [Concomitant]
     Indication: RETINAL DISORDER
     Dates: start: 20120611
  4. ANZEPAM [Concomitant]
     Indication: INSOMNIA
     Dates: start: 20120611
  5. KINGMIN [Concomitant]
     Indication: DRY EYE
     Dates: start: 20120903
  6. RHIN [Concomitant]
     Indication: UPPER RESPIRATORY TRACT INFECTION
     Dates: start: 20121001, end: 20121008
  7. PNEUMOCOCCAL VACCINE POLYVALENT [Concomitant]
     Indication: INFLUENZA
     Dates: start: 20121029, end: 20121029

REACTIONS (1)
  - Upper respiratory tract infection [Unknown]
